FAERS Safety Report 5464817-7 (Version None)
Quarter: 2007Q3

REPORT INFORMATION
  Report Type: 
  Country: None (occurrence: None)
  Receive Date: 20070921
  Receipt Date: 20070910
  Transmission Date: 20080115
  Serious: Yes (Hospitalization)
  Sender: FDA-Public Use
  Company Number: FR-PFIZER INC-2007075807

PATIENT
  Sex: Female

DRUGS (2)
  1. ARTHROTEC [Suspect]
  2. ACENOCOUMAROL [Concomitant]

REACTIONS (1)
  - UNEVALUABLE EVENT [None]
